FAERS Safety Report 4746702-9 (Version None)
Quarter: 2005Q3

REPORT INFORMATION
  Report Type: 
  Country: None (occurrence: None)
  Receive Date: 20050815
  Receipt Date: 20050722
  Transmission Date: 20060218
  Serious: Yes (Other)
  Sender: FDA-Public Use
  Company Number: 27162

PATIENT
  Age: 28 Year
  Sex: Female

DRUGS (1)
  1. FLECAINIDE ACETATE [Suspect]
     Indication: TACHYCARDIA FOETAL

REACTIONS (6)
  - ASCITES [None]
  - DRUG EXPOSURE DURING PREGNANCY [None]
  - FOETAL DISORDER [None]
  - INDUCED LABOUR [None]
  - PREMATURE LABOUR [None]
  - TACHYCARDIA FOETAL [None]
